FAERS Safety Report 25836847 (Version 2)
Quarter: 2025Q3

REPORT INFORMATION
  Report Type: Report from Study
  Country: CN (occurrence: CN)
  Receive Date: 20250923
  Receipt Date: 20250926
  Transmission Date: 20251020
  Serious: Yes (Other)
  Sender: PFIZER
  Company Number: CN-PFIZER INC-PV202500113275

PATIENT
  Age: 32 Year
  Sex: Female

DRUGS (1)
  1. TIGECYCLINE [Interacting]
     Active Substance: TIGECYCLINE
     Indication: Acinetobacter infection
     Dosage: DAILY (INTRAVENTRICULAR)

REACTIONS (1)
  - Drug chemical incompatibility [Recovered/Resolved]
